FAERS Safety Report 10521865 (Version 1)
Quarter: 2014Q4

REPORT INFORMATION
  Report Type: Spontaneous
  Country: US (occurrence: None)
  Receive Date: 20141014
  Receipt Date: 20141014
  Transmission Date: 20150528
  Serious: Yes (Other)
  Sender: FDA-Public Use
  Company Number: None

PATIENT
  Age: 47 Year
  Sex: Female
  Weight: 54.43 kg

DRUGS (2)
  1. CARBAMAZEPINE 400MG X 2 DAILY APOTEX [Suspect]
     Active Substance: CARBAMAZEPINE
     Indication: EPILEPSY
     Dosage: 1 PILL
     Route: 048
     Dates: start: 20090701, end: 20090701
  2. VALPROATE [Suspect]
     Active Substance: VALPROIC ACID
     Indication: EPILEPSY
     Dosage: 2 PILLS
     Route: 048
     Dates: start: 20090701, end: 20091001

REACTIONS (1)
  - Seizure [None]

NARRATIVE: CASE EVENT DATE: 20090801
